FAERS Safety Report 7092054-1 (Version None)
Quarter: 2010Q4

REPORT INFORMATION
  Report Type: 
  Country: None (occurrence: None)
  Receive Date: 20101109
  Receipt Date: 20080724
  Transmission Date: 20110411
  Serious: No
  Sender: FDA-Public Use
  Company Number: US-KINGPHARMUSA00001-K200800160

PATIENT
  Age: 60 Year
  Sex: Female
  Weight: 57.596 kg

DRUGS (4)
  1. TAPAZOLE [Suspect]
     Indication: HYPERTHYROIDISM
     Dosage: 10 MG, BID
     Route: 048
     Dates: start: 20071201, end: 20080101
  2. TAPAZOLE [Suspect]
     Dosage: 10 MG, TID
     Route: 048
     Dates: start: 20080101, end: 20080101
  3. TAPAZOLE [Suspect]
     Dosage: 20 MG, BID
     Route: 048
     Dates: start: 20080101, end: 20080101
  4. TAPAZOLE [Suspect]
     Dosage: 10 MG, BID
     Route: 048
     Dates: start: 20080101

REACTIONS (10)
  - BLOOD GLUCOSE INCREASED [None]
  - DENTAL CARIES [None]
  - DIABETES MELLITUS [None]
  - DRY EYE [None]
  - HUNGER [None]
  - POLYURIA [None]
  - RASH PRURITIC [None]
  - THIRST [None]
  - TOOTH DISORDER [None]
  - TRI-IODOTHYRONINE INCREASED [None]
